FAERS Safety Report 12789494 (Version 9)
Quarter: 2019Q1

REPORT INFORMATION
  Report Type: Report from Study
  Country: None (occurrence: US)
  Receive Date: 20160928
  Receipt Date: 20190308
  Transmission Date: 20190417
  Serious: Yes (Other)
  Sender: FDA-Public Use
  Company Number: US-ABBVIE-16K-163-1736343-00

PATIENT
  Age: 63 Year
  Sex: Male

DRUGS (31)
  1. CLONAZEPAM. [Suspect]
     Active Substance: CLONAZEPAM
     Indication: PRODUCT USED FOR UNKNOWN INDICATION
     Route: 065
  2. ASPIRIN. [Concomitant]
     Active Substance: ASPIRIN
     Indication: PRODUCT USED FOR UNKNOWN INDICATION
  3. INSULIN [Concomitant]
     Active Substance: INSULIN NOS
     Indication: PRODUCT USED FOR UNKNOWN INDICATION
  4. HUMIRA [Suspect]
     Active Substance: ADALIMUMAB
     Indication: PSORIASIS
     Route: 058
     Dates: start: 2013, end: 2013
  5. ZYRTEC [Concomitant]
     Active Substance: CETIRIZINE HYDROCHLORIDE
     Indication: PRODUCT USED FOR UNKNOWN INDICATION
  6. ATENOLOL. [Concomitant]
     Active Substance: ATENOLOL
     Indication: PRODUCT USED FOR UNKNOWN INDICATION
  7. PARAFON FORTE [Concomitant]
     Active Substance: CHLORZOXAZONE
     Indication: PRODUCT USED FOR UNKNOWN INDICATION
  8. DOVONEX [Concomitant]
     Active Substance: CALCIPOTRIENE
     Indication: PRODUCT USED FOR UNKNOWN INDICATION
     Route: 061
  9. OXYCODONE [Suspect]
     Active Substance: OXYCODONE
     Indication: PAIN
     Route: 065
  10. TOPIRAMATE. [Suspect]
     Active Substance: TOPIRAMATE
     Indication: PRODUCT USED FOR UNKNOWN INDICATION
     Route: 065
  11. LEFLUNOMIDE. [Concomitant]
     Active Substance: LEFLUNOMIDE
     Indication: PRODUCT USED FOR UNKNOWN INDICATION
  12. ALIGN [Concomitant]
     Active Substance: BIFIDOBACTERIUM LONGUM SUBSP. INFANTIS
     Indication: PRODUCT USED FOR UNKNOWN INDICATION
  13. DIPHENHYDRAMINE. [Concomitant]
     Active Substance: DIPHENHYDRAMINE
     Indication: PRODUCT USED FOR UNKNOWN INDICATION
  14. ATORVASTATIN [Concomitant]
     Active Substance: ATORVASTATIN
     Indication: PRODUCT USED FOR UNKNOWN INDICATION
  15. LISINOPRIL. [Concomitant]
     Active Substance: LISINOPRIL
     Indication: PRODUCT USED FOR UNKNOWN INDICATION
  16. HUMIRA [Suspect]
     Active Substance: ADALIMUMAB
     Indication: PSORIATIC ARTHROPATHY
     Route: 058
     Dates: start: 2013, end: 201606
  17. CALCIUM [Concomitant]
     Active Substance: CALCIUM
     Indication: PRODUCT USED FOR UNKNOWN INDICATION
  18. GABAPENTIN. [Concomitant]
     Active Substance: GABAPENTIN
     Indication: PRODUCT USED FOR UNKNOWN INDICATION
  19. GEMFIBROZIL. [Concomitant]
     Active Substance: GEMFIBROZIL
     Indication: PRODUCT USED FOR UNKNOWN INDICATION
  20. NOVLOG 70/30 [Concomitant]
     Indication: PRODUCT USED FOR UNKNOWN INDICATION
  21. LOPERAMIDE [Concomitant]
     Active Substance: LOPERAMIDE
     Indication: PRODUCT USED FOR UNKNOWN INDICATION
  22. LORATADINE. [Concomitant]
     Active Substance: LORATADINE
     Indication: PRODUCT USED FOR UNKNOWN INDICATION
  23. OMEGA 3 [Concomitant]
     Active Substance: OMEGA-3 FATTY ACIDS
     Indication: PRODUCT USED FOR UNKNOWN INDICATION
  24. VITAMIN E [Concomitant]
     Active Substance: .ALPHA.-TOCOPHEROL
     Indication: PRODUCT USED FOR UNKNOWN INDICATION
  25. AMMONIUM LACTATE. [Concomitant]
     Active Substance: AMMONIUM LACTATE
     Indication: PRODUCT USED FOR UNKNOWN INDICATION
     Route: 061
  26. PANTOPRAZOLE [Concomitant]
     Active Substance: PANTOPRAZOLE
     Indication: PRODUCT USED FOR UNKNOWN INDICATION
  27. MULTIVITAMIN [Concomitant]
     Active Substance: VITAMINS
     Indication: PRODUCT USED FOR UNKNOWN INDICATION
  28. HUMIRA [Suspect]
     Active Substance: ADALIMUMAB
     Route: 058
     Dates: start: 201606
  29. BETAMETHASONE DIPROPIONATE. [Concomitant]
     Active Substance: BETAMETHASONE DIPROPIONATE
     Indication: PRODUCT USED FOR UNKNOWN INDICATION
     Route: 061
  30. CLONAZEPAM. [Concomitant]
     Active Substance: CLONAZEPAM
     Indication: PAIN
  31. ULTRAM [Concomitant]
     Active Substance: TRAMADOL HYDROCHLORIDE
     Indication: PRODUCT USED FOR UNKNOWN INDICATION

REACTIONS (83)
  - Seizure [Unknown]
  - Surgery [Unknown]
  - Intervertebral disc protrusion [Not Recovered/Not Resolved]
  - Irritable bowel syndrome [Unknown]
  - Decreased appetite [Unknown]
  - Gait disturbance [Unknown]
  - Device difficult to use [Recovered/Resolved]
  - Fall [Not Recovered/Not Resolved]
  - Palpitations [Unknown]
  - Renal pain [Unknown]
  - Therapeutic response shortened [Unknown]
  - Rib fracture [Unknown]
  - Drug withdrawal convulsions [Unknown]
  - Angina pectoris [Unknown]
  - Eye discharge [Unknown]
  - Bipolar disorder [Unknown]
  - Sleep talking [Unknown]
  - Drug withdrawal syndrome [Unknown]
  - Colitis ulcerative [Unknown]
  - Weight decreased [Unknown]
  - Procedural pain [Not Recovered/Not Resolved]
  - Asthenia [Recovering/Resolving]
  - Arteriosclerosis [Unknown]
  - Diabetes mellitus [Not Recovered/Not Resolved]
  - Colitis microscopic [Unknown]
  - Gastrooesophageal reflux disease [Unknown]
  - Mood swings [Unknown]
  - Anger [Unknown]
  - Tremor [Unknown]
  - Adverse drug reaction [Unknown]
  - Spinal column injury [Unknown]
  - Skin fissures [Not Recovered/Not Resolved]
  - Colitis ulcerative [Recovered/Resolved]
  - Intervertebral disc degeneration [Unknown]
  - Tendonitis [Not Recovered/Not Resolved]
  - Nail disorder [Not Recovered/Not Resolved]
  - Anxiety [Unknown]
  - Muscle atrophy [Unknown]
  - Nerve compression [Unknown]
  - Nail infection [Recovered/Resolved]
  - Pain of skin [Not Recovered/Not Resolved]
  - Musculoskeletal pain [Not Recovered/Not Resolved]
  - Spinal pain [Unknown]
  - Skin atrophy [Unknown]
  - Skin hypertrophy [Not Recovered/Not Resolved]
  - Hyperkeratosis [Not Recovered/Not Resolved]
  - Cognitive disorder [Unknown]
  - Joint lock [Unknown]
  - Back disorder [Not Recovered/Not Resolved]
  - Psoriasis [Recovered/Resolved]
  - Arthralgia [Unknown]
  - Intervertebral disc disorder [Unknown]
  - Arthropathy [Unknown]
  - Migraine [Unknown]
  - Borderline glaucoma [Not Recovered/Not Resolved]
  - Hypoaesthesia [Unknown]
  - Hypoaesthesia [Not Recovered/Not Resolved]
  - Depression [Unknown]
  - Diarrhoea [Unknown]
  - Hypoglycaemia [Not Recovered/Not Resolved]
  - Ligament rupture [Unknown]
  - Ingrowing nail [Unknown]
  - Blood pressure increased [Unknown]
  - Sciatica [Unknown]
  - Balance disorder [Unknown]
  - Sinus disorder [Unknown]
  - Fear [Unknown]
  - Paralysis [Unknown]
  - Ligament sprain [Unknown]
  - Migraine [Not Recovered/Not Resolved]
  - Muscle twitching [Unknown]
  - Psoriasis [Recovered/Resolved]
  - Bronchitis [Unknown]
  - Drug dependence [Unknown]
  - Onychomadesis [Recovered/Resolved]
  - Mobility decreased [Not Recovered/Not Resolved]
  - Tinnitus [Unknown]
  - Onychoclasis [Unknown]
  - Insomnia [Unknown]
  - Arthritis [Unknown]
  - Muscular weakness [Unknown]
  - Sinusitis [Unknown]
  - Drug hypersensitivity [Unknown]

NARRATIVE: CASE EVENT DATE: 2015
